FAERS Safety Report 24881541 (Version 1)
Quarter: 2025Q1

REPORT INFORMATION
  Report Type: Spontaneous
  Country: US (occurrence: US)
  Receive Date: 20250124
  Receipt Date: 20250124
  Transmission Date: 20250409
  Serious: Yes (Hospitalization, Other)
  Sender: HIKMA
  Company Number: US-HIKMA PHARMACEUTICALS USA INC.-US-H14001-25-00454

PATIENT
  Age: 43 Year
  Sex: Female

DRUGS (9)
  1. FLUOROURACIL [Suspect]
     Active Substance: FLUOROURACIL
     Indication: Colon cancer
     Route: 065
  2. HALDOL [Suspect]
     Active Substance: HALOPERIDOL
     Indication: Product used for unknown indication
     Route: 065
  3. LEUCOVORIN [Suspect]
     Active Substance: LEUCOVORIN\LEUCOVORIN CALCIUM
     Indication: Colon cancer
     Route: 065
  4. MORPHINE [Suspect]
     Active Substance: MORPHINE
     Indication: Product used for unknown indication
     Route: 065
  5. OXALIPLATIN [Suspect]
     Active Substance: OXALIPLATIN
     Indication: Colon cancer
     Route: 065
  6. OMEPRAZOLE [Suspect]
     Active Substance: OMEPRAZOLE
     Indication: Product used for unknown indication
     Route: 065
  7. SUCRALFATE [Suspect]
     Active Substance: SUCRALFATE
     Indication: Product used for unknown indication
     Route: 065
  8. ZOFRAN [Suspect]
     Active Substance: ONDANSETRON HYDROCHLORIDE
     Indication: Product used for unknown indication
     Route: 065
  9. ZYPREXA [Suspect]
     Active Substance: OLANZAPINE
     Indication: Product used for unknown indication
     Route: 065

REACTIONS (12)
  - Anaemia [Unknown]
  - Metastatic neoplasm [Unknown]
  - Haemorrhage [Unknown]
  - Neoplasm malignant [Unknown]
  - Appendix disorder [Unknown]
  - Abdominal discomfort [Unknown]
  - Pelvic mass [Unknown]
  - Metastasis [Unknown]
  - Disease progression [Unknown]
  - Hydronephrosis [Recovered/Resolved]
  - Drug intolerance [Unknown]
  - Treatment noncompliance [Unknown]
